FAERS Safety Report 8966188 (Version 2)
Quarter: 2013Q1

REPORT INFORMATION
  Report Type: Spontaneous
  Country: US (occurrence: US)
  Receive Date: 20121217
  Receipt Date: 20130201
  Transmission Date: 20140127
  Serious: Yes (Hospitalization, Other)
  Sender: FDA-Public Use
  Company Number: US-PFIZER INC-2012313900

PATIENT
  Age: 68 Year
  Sex: Male
  Weight: 79.37 kg

DRUGS (4)
  1. VFEND [Suspect]
     Indication: FUNGAL INFECTION
     Dosage: 200 MG, 2X/DAY
     Route: 048
     Dates: start: 201206
  2. TASIGNA [Concomitant]
     Indication: LEUKAEMIA
     Dosage: 400 MG, 2X/DAY
     Route: 048
  3. TASIGNA [Concomitant]
     Dosage: 200 MG, 2X/DAY
  4. METOPROLOL [Concomitant]
     Dosage: 50 MG, 2X/DAY

REACTIONS (13)
  - Tachycardia [Unknown]
  - Pancytopenia [Unknown]
  - Leukaemia recurrent [Unknown]
  - Atrial fibrillation [Unknown]
  - Platelet count decreased [Unknown]
  - Arthralgia [Unknown]
  - Myalgia [Unknown]
  - Nausea [Unknown]
  - Feeling jittery [Unknown]
  - Agitation [Unknown]
  - Rash [Recovered/Resolved]
  - Pain [Recovering/Resolving]
  - Splenomegaly [Unknown]
